FAERS Safety Report 8530006-2 (Version None)
Quarter: 2012Q3

REPORT INFORMATION
  Report Type: 
  Country: None (occurrence: None)
  Receive Date: 20120723
  Receipt Date: 20120716
  Transmission Date: 20120928
  Serious: Yes (Hospitalization, Disabling, Other)
  Sender: FDA-Public Use
  Company Number: PHHY2012FR061819

PATIENT
  Sex: Female

DRUGS (5)
  1. BISOPROLOL FUMARATE AND HYDROCHLOROTHIAZIDE [Concomitant]
  2. ZOPICLONE [Concomitant]
  3. ERGOTAMINE TARTRATE AND CAFFEINE [Suspect]
     Indication: MIGRAINE
     Dosage: 1 DF, UNK
     Route: 048
     Dates: start: 20080501, end: 20120501
  4. ATARAX [Concomitant]
     Dosage: UNK
     Dates: end: 20120509
  5. OXAZEPAM [Concomitant]

REACTIONS (30)
  - GENERAL PHYSICAL CONDITION ABNORMAL [None]
  - PULMONARY FIBROSIS [None]
  - IMMUNE SYSTEM DISORDER [None]
  - WEIGHT DECREASED [None]
  - LUNG DISORDER [None]
  - PULMONARY ALVEOLAR HAEMORRHAGE [None]
  - BRONCHIECTASIS [None]
  - RALES [None]
  - HAEMATURIA [None]
  - MALNUTRITION [None]
  - NODULE [None]
  - ANTINEUTROPHIL CYTOPLASMIC ANTIBODY POSITIVE [None]
  - ASBESTOSIS [None]
  - PROTEINURIA [None]
  - INFLAMMATION [None]
  - JUGULAR VEIN DISTENSION [None]
  - RENAL FAILURE [None]
  - ESCHERICHIA INFECTION [None]
  - PSYCHOTIC DISORDER [None]
  - ASTHENIA [None]
  - SLEEP DISORDER [None]
  - DECREASED APPETITE [None]
  - MICROSCOPIC POLYANGIITIS [None]
  - INTERSTITIAL LUNG DISEASE [None]
  - DYSPNOEA [None]
  - COUGH [None]
  - LYMPHADENOPATHY [None]
  - CREPITATIONS [None]
  - EMOTIONAL DISORDER [None]
  - DIARRHOEA [None]
